FAERS Safety Report 6829248-3 (Version None)
Quarter: 2010Q3

REPORT INFORMATION
  Report Type: 
  Country: None (occurrence: None)
  Receive Date: 20100709
  Receipt Date: 20070308
  Transmission Date: 20110219
  Serious: No
  Sender: FDA-Public Use
  Company Number: US-PFIZER INC-2007019540

PATIENT
  Sex: Male
  Weight: 68.95 kg

DRUGS (4)
  1. CHANTIX [Suspect]
     Indication: SMOKING CESSATION THERAPY
     Dates: start: 20070101
  2. AVAPRO [Concomitant]
     Indication: HYPERTENSION
  3. ATENOLOL [Concomitant]
     Indication: HYPERTENSION
  4. ATROVENT [Concomitant]
     Indication: HYPERTENSION

REACTIONS (5)
  - ABNORMAL DREAMS [None]
  - DECREASED APPETITE [None]
  - DRUG DOSE OMISSION [None]
  - MIDDLE INSOMNIA [None]
  - NAUSEA [None]
